FAERS Safety Report 5067029-4 (Version None)
Quarter: 2006Q3

REPORT INFORMATION
  Report Type: 
  Country: None (occurrence: None)
  Receive Date: 20060726
  Receipt Date: 20060713
  Transmission Date: 20061208
  Serious: Yes (Other)
  Sender: FDA-Public Use
  Company Number: 2006088689

PATIENT
  Age: 60 Year
  Sex: Male
  Weight: 73.9363 kg

DRUGS (7)
  1. LYRICA [Suspect]
     Indication: DIABETIC NEUROPATHY
     Dosage: 100 MG DAILY
     Dates: start: 20060501
  2. LYRICA [Suspect]
     Indication: HERPES ZOSTER
     Dosage: 100 MG DAILY
     Dates: start: 20060501
  3. CELLCEPT [Concomitant]
  4. INSULIN [Concomitant]
  5. ALPRAZOLAM [Concomitant]
  6. PYRIDOSTIGMINE (PYRIDOSTIGMINE) [Concomitant]
  7. IMMUNE SERUM GLOBULIN (IMMOGLOBULIN HUMAN  NORMAL) [Concomitant]

REACTIONS (2)
  - DISEASE RECURRENCE [None]
  - MYASTHENIA GRAVIS [None]
